FAERS Safety Report 20613230 (Version 1)
Quarter: 2022Q1

REPORT INFORMATION
  Report Type: Spontaneous
  Country: AT (occurrence: AT)
  Receive Date: 20220318
  Receipt Date: 20220318
  Transmission Date: 20220423
  Serious: Yes (Hospitalization)
  Sender: FDA-Public Use
  Company Number: AT-SA-SAC20220317000094

PATIENT
  Age: 7 Year
  Sex: Female

DRUGS (2)
  1. DUPIXENT [Suspect]
     Active Substance: DUPILUMAB
     Indication: Dermatitis atopic
     Dosage: UNK UNK, 1X
  2. DUPIXENT [Suspect]
     Active Substance: DUPILUMAB
     Dosage: 300 MG, QM

REACTIONS (6)
  - Pyrexia [Unknown]
  - Lymphadenopathy [Unknown]
  - Bone pain [Unknown]
  - Arthralgia [Unknown]
  - Product use issue [Unknown]
  - Product use issue [Unknown]
